FAERS Safety Report 6295962-4 (Version None)
Quarter: 2009Q3

REPORT INFORMATION
  Report Type: 
  Country: None (occurrence: None)
  Receive Date: 20090803
  Receipt Date: 20090803
  Transmission Date: 20100115
  Serious: Yes (Hospitalization, Disabling)
  Sender: FDA-Public Use
  Company Number: None

PATIENT
  Sex: Female

DRUGS (1)
  1. AMIODARONE HCL [Suspect]
     Indication: ATRIAL FIBRILLATION
     Dosage: 200 MG TWICE DAILY PO  2 DOSES
     Route: 048
     Dates: start: 20090715, end: 20090715

REACTIONS (3)
  - HYPOTENSION [None]
  - RESPIRATORY DISORDER [None]
  - URTICARIA [None]
